FAERS Safety Report 8550583-5 (Version None)
Quarter: 2012Q3

REPORT INFORMATION
  Report Type: 
  Country: None (occurrence: None)
  Receive Date: 20120730
  Receipt Date: 20110620
  Transmission Date: 20120928
  Serious: No
  Sender: FDA-Public Use
  Company Number: US-ALLERGAN-1108271US

PATIENT
  Sex: Female

DRUGS (3)
  1. TOPAMAX [Concomitant]
     Indication: HEADACHE
     Dosage: UNK
  2. LATISSE [Suspect]
     Indication: MADAROSIS
     Dosage: 1 GTT, QHS
     Route: 061
     Dates: start: 20110429
  3. ALTRAN [Concomitant]
     Indication: HEADACHE
     Dosage: UNK

REACTIONS (1)
  - THERAPEUTIC RESPONSE DECREASED [None]
